FAERS Safety Report 12328315 (Version 1)
Quarter: 2016Q2

REPORT INFORMATION
  Report Type: Spontaneous
  Country: US (occurrence: US)
  Receive Date: 20160503
  Receipt Date: 20160503
  Transmission Date: 20160815
  Serious: No
  Sender: FDA-Public Use
  Company Number: US-ACTELION-A-NJ2016-135056

PATIENT
  Age: 90 Year
  Sex: Male

DRUGS (7)
  1. BYSTOLIC [Concomitant]
     Active Substance: NEBIVOLOL HYDROCHLORIDE
     Dosage: 5 MG, UNK
  2. CANDESARTAN + HIDROCLOROTIAZIDA ACTAVIS [Concomitant]
     Dosage: 23/12.5
  3. VALCHLOR [Suspect]
     Active Substance: MECHLORETHAMINE
     Indication: MYCOSIS FUNGOIDES
     Dosage: 0.016 %, UNK
     Route: 061
     Dates: start: 201507
  4. DOXAZOSIN MESILATE [Concomitant]
     Active Substance: DOXAZOSIN MESYLATE
     Dosage: 8 MG, UNK
  5. TORSEMIDE. [Concomitant]
     Active Substance: TORSEMIDE
     Dosage: 10 MG, UNK
  6. POTASSIUM CHLORIDE. [Concomitant]
     Active Substance: POTASSIUM CHLORIDE
     Dosage: 10 MEQ, UNK
  7. PRADAXA [Concomitant]
     Active Substance: DABIGATRAN ETEXILATE MESYLATE
     Dosage: 75 MG, UNK

REACTIONS (1)
  - Peripheral swelling [Not Recovered/Not Resolved]
